FAERS Safety Report 19888309 (Version 2)
Quarter: 2021Q4

REPORT INFORMATION
  Report Type: Spontaneous
  Country: DE (occurrence: DE)
  Receive Date: 20210928
  Receipt Date: 20211012
  Transmission Date: 20220304
  Serious: Yes (Hospitalization)
  Sender: FDA-Public Use
  Company Number: DE-ADRED-07126-01

PATIENT
  Age: 82 Year
  Sex: Female

DRUGS (13)
  1. CARBIDOPA\LEVODOPA [Suspect]
     Active Substance: CARBIDOPA\LEVODOPA
     Dosage: 100/25 MG, SCHEME
  2. CARBIDOPA\LEVODOPA [Suspect]
     Active Substance: CARBIDOPA\LEVODOPA
     Dosage: 200/50 MG, SCHEME
  3. BENSERAZIDE HYDROCHLORIDE\LEVODOPA [Suspect]
     Active Substance: BENSERAZIDE HYDROCHLORIDE\LEVODOPA
     Dosage: 25/100 MG, SCHEME
  4. PANTOPRAZOLE [Concomitant]
     Active Substance: PANTOPRAZOLE
     Dosage: 40 MG, 0-1-0-0
  5. PROTHIPENDYL [Concomitant]
     Active Substance: PROTHIPENDYL
     Dosage: 48 MG, 0-0-0-8
  6. ATORVASTATIN [Concomitant]
     Active Substance: ATORVASTATIN
     Dosage: 20 MG, 0-0-0-0.5
  7. CHOLECALCIFEROL [Concomitant]
     Active Substance: CHOLECALCIFEROL
     Dosage: 1000 IE, 1-0-0-0, VITAMIN D
  8. ROTIGOTINE [Concomitant]
     Active Substance: ROTIGOTINE
     Dosage: 2 MG, 1-0-0-0
  9. ECOTHIOPATE IODIDE [Concomitant]
     Dosage: 1529 MICROGRAM, SCHEME
  10. RAMIPRIL [Concomitant]
     Active Substance: RAMIPRIL
     Dosage: 2.5 MG, 1-0-0-0
  11. ASPIRIN [Concomitant]
     Active Substance: ASPIRIN
     Dosage: 100 MG, 1-0-0-0
  12. SAFINAMIDE [Concomitant]
     Active Substance: SAFINAMIDE
     Dosage: 100 MG, 1-0-0-0
  13. FOLIC ACID [Concomitant]
     Active Substance: FOLIC ACID
     Dosage: 0.4 MG, 0-1-0-0

REACTIONS (5)
  - Condition aggravated [Unknown]
  - On and off phenomenon [Unknown]
  - Confusional state [Unknown]
  - Disorientation [Unknown]
  - General physical health deterioration [Unknown]
